FAERS Safety Report 4262933-9 (Version None)
Quarter: 2004Q1

REPORT INFORMATION
  Report Type: 
  Country: None (occurrence: None)
  Receive Date: 20040102
  Receipt Date: 20040102
  Transmission Date: 20041129
  Serious: Yes (Disabling)
  Sender: FDA-Public Use
  Company Number: None

PATIENT
  Sex: Female
  Weight: 90.7194 kg

DRUGS (8)
  1. CARBATROL [Suspect]
     Indication: MERALGIA PARAESTHETICA
     Dosage: 200 MG BID ORAL
     Route: 048
     Dates: start: 20030904, end: 20031212
  2. CARBATROL [Suspect]
     Indication: RESTLESS LEGS SYNDROME
     Dosage: 200 MG BID ORAL
     Route: 048
     Dates: start: 20030904, end: 20031212
  3. NORTRIPTYLINE HCL [Concomitant]
  4. PREMARIN [Concomitant]
  5. PREVACID [Concomitant]
  6. SYNTHROID [Concomitant]
  7. REQUIP [Concomitant]
  8. NEURONTIN [Concomitant]

REACTIONS (2)
  - AMNESIA [None]
  - SPEECH DISORDER [None]
